FAERS Safety Report 9922372 (Version 1)
Quarter: 2014Q1

REPORT INFORMATION
  Report Type: Spontaneous
  Country: US (occurrence: None)
  Receive Date: 20140224
  Receipt Date: 20140224
  Transmission Date: 20141002
  Serious: Yes (Life-Threatening, Hospitalization)
  Sender: FDA-Public Use
  Company Number: None

PATIENT
  Age: 76 Year
  Sex: Male

DRUGS (7)
  1. BRENTUXIMAB VEDOTIN [Suspect]
     Indication: HODGKIN^S DISEASE
     Route: 042
     Dates: start: 20140206, end: 20140206
  2. AMITRIPTYLLINE [Concomitant]
  3. KC1 [Concomitant]
  4. OXYCODONE [Concomitant]
  5. COUMADIN [Concomitant]
  6. SYNTHROID [Concomitant]
  7. LASIX [Concomitant]

REACTIONS (5)
  - Fatigue [None]
  - Asthenia [None]
  - Gait disturbance [None]
  - Blood glucose increased [None]
  - Hypotension [None]
